FAERS Safety Report 5577756-8 (Version None)
Quarter: 2007Q4

REPORT INFORMATION
  Report Type: 
  Country: None (occurrence: None)
  Receive Date: 20071227
  Receipt Date: 20071213
  Transmission Date: 20080405
  Serious: Yes (Other)
  Sender: FDA-Public Use
  Company Number: DSA_31079_2007

PATIENT
  Sex: Female
  Weight: 138.8007 kg

DRUGS (4)
  1. CARDIZEM LA [Suspect]
     Indication: OESOPHAGEAL DISORDER
     Dosage: (DF ORAL)
     Route: 048
     Dates: start: 20070901, end: 20070901
  2. INDERAL [Concomitant]
  3. DIOVAN [Concomitant]
  4. LASIX [Concomitant]

REACTIONS (4)
  - GENERALISED ERYTHEMA [None]
  - HAEMORRHAGE [None]
  - PRURITUS GENERALISED [None]
  - SCRATCH [None]
